FAERS Safety Report 11791119 (Version 1)
Quarter: 2015Q4

REPORT INFORMATION
  Report Type: Spontaneous
  Country: US (occurrence: US)
  Receive Date: 20151201
  Receipt Date: 20151201
  Transmission Date: 20160305
  Serious: No
  Sender: FDA-Public Use
  Company Number: US-BAYER-2015-479904

PATIENT
  Age: 4 Year
  Sex: Male
  Weight: 14.51 kg

DRUGS (1)
  1. CHILDREN CLARITIN ALLERGY [Suspect]
     Active Substance: LORATADINE
     Dosage: 20 ML, ONCE

REACTIONS (2)
  - Accidental exposure to product by child [Unknown]
  - Product use issue [None]
